FAERS Safety Report 8128429-9 (Version None)
Quarter: 2012Q1

REPORT INFORMATION
  Report Type: 
  Country: None (occurrence: None)
  Receive Date: 20120103
  Receipt Date: 20111004
  Transmission Date: 20120608
  Serious: No
  Sender: FDA-Public Use
  Company Number: AE-2011-001247

PATIENT
  Age: 64 Year
  Sex: Male
  Weight: 86.1834 kg

DRUGS (7)
  1. RIBAVIRIN [Concomitant]
  2. INCIVEK [Suspect]
     Dosage: 2250 MG (750 MG, 3 IN 1 D)
     Dates: start: 20110827
  3. OXCARBAZEPIN (OXCARBAZEPINE) [Concomitant]
  4. OMEPRAZOLE [Concomitant]
  5. AMLOD-BENAZ (AMLODIPINE BESYLATE W/BENAZEPRIL) [Concomitant]
  6. PEGASYS [Concomitant]
  7. ZALEPLON [Concomitant]

REACTIONS (6)
  - EYE DISORDER [None]
  - WHITE BLOOD CELL COUNT DECREASED [None]
  - VISION BLURRED [None]
  - INAPPROPRIATE SCHEDULE OF DRUG ADMINISTRATION [None]
  - DIZZINESS [None]
  - HAEMOGLOBIN DECREASED [None]
